FAERS Safety Report 22658889 (Version 1)
Quarter: 2023Q2

REPORT INFORMATION
  Report Type: Spontaneous
  Country: US (occurrence: US)
  Receive Date: 20230630
  Receipt Date: 20230630
  Transmission Date: 20230722
  Serious: No
  Sender: FDA-Public Use
  Company Number: US-GALDERMA-US2023009082

PATIENT

DRUGS (1)
  1. DIFFERIN GEL [Suspect]
     Active Substance: ADAPALENE
     Indication: Skin wrinkling
     Dosage: 1 DOSAGE FORM
     Route: 061

REACTIONS (8)
  - Skin burning sensation [Unknown]
  - Rash erythematous [Unknown]
  - Skin exfoliation [Unknown]
  - Acne [Unknown]
  - Dry skin [Unknown]
  - Swelling face [Unknown]
  - Hypersensitivity [Unknown]
  - Product use in unapproved indication [Recovered/Resolved]

NARRATIVE: CASE EVENT DATE: 20230601
